FAERS Safety Report 6856923-7 (Version None)
Quarter: 2010Q3

REPORT INFORMATION
  Report Type: 
  Country: None (occurrence: None)
  Receive Date: 20100719
  Receipt Date: 20100714
  Transmission Date: 20110219
  Serious: Yes (Death, Hospitalization)
  Sender: FDA-Public Use
  Company Number: PHHY2010MX26319

PATIENT
  Sex: Female

DRUGS (1)
  1. ZOMETA [Suspect]
     Indication: MULTIPLE MYELOMA
     Dosage: 4 MG, QMO
     Dates: start: 20071201, end: 20080901

REACTIONS (5)
  - MULTIPLE MYELOMA [None]
  - PERITONEAL DIALYSIS [None]
  - RENAL FAILURE [None]
  - RESPIRATORY DISORDER [None]
  - TRACHEOSTOMY [None]
